FAERS Safety Report 10363442 (Version 2)
Quarter: 2014Q3

REPORT INFORMATION
  Report Type: Spontaneous
  Country: US (occurrence: US)
  Receive Date: 20140805
  Receipt Date: 20140805
  Transmission Date: 20150326
  Serious: Yes (Other)
  Sender: FDA-Public Use
  Company Number: US-009507513-2009SP023500

PATIENT
  Sex: Female
  Weight: 70.76 kg

DRUGS (2)
  1. NUVARING [Suspect]
     Active Substance: ETHINYL ESTRADIOL\ETONOGESTREL
     Indication: CONTRACEPTION
     Route: 067
     Dates: start: 2006
  2. NUVARING [Suspect]
     Active Substance: ETHINYL ESTRADIOL\ETONOGESTREL
     Indication: MENSTRUAL CYCLE MANAGEMENT

REACTIONS (9)
  - Headache [Unknown]
  - Tooth extraction [Unknown]
  - Thrombosis [Recovered/Resolved]
  - Mass [Not Recovered/Not Resolved]
  - Paranasal sinus discomfort [Unknown]
  - Neck mass [Unknown]
  - Smear cervix abnormal [Unknown]
  - Gastroenteritis viral [Recovered/Resolved]
  - Off label use [Unknown]

NARRATIVE: CASE EVENT DATE: 200808
